FAERS Safety Report 23790078 (Version 1)
Quarter: 2024Q2

REPORT INFORMATION
  Report Type: Other
  Country: US (occurrence: US)
  Receive Date: 20240426
  Receipt Date: 20240426
  Transmission Date: 20240716
  Serious: Yes (Hospitalization)
  Sender: FDA-Public Use
  Company Number: US-SIGA Technologies, Inc.-2156133

PATIENT
  Sex: Male

DRUGS (8)
  1. TPOXX [Suspect]
     Active Substance: TECOVIRIMAT
     Indication: Monkeypox
     Route: 048
  2. TPOXX [Suspect]
     Active Substance: TECOVIRIMAT
     Route: 042
  3. antiretroviral therapy (ART) [Concomitant]
  4. DOXYCYCLINE [Concomitant]
     Active Substance: DOXYCYCLINE
  5. CIDOFOVIR [Concomitant]
     Active Substance: CIDOFOVIR
     Route: 042
  6. VANCOMYCIN HYDROCHLORIDE [Concomitant]
     Active Substance: VANCOMYCIN HYDROCHLORIDE
  7. alafenamide [Concomitant]
  8. BICTEGRAVIR SODIUM\EMTRICITABINE\TENOFOVIR ALAFENAMIDE FUMARATE [Concomitant]
     Active Substance: BICTEGRAVIR SODIUM\EMTRICITABINE\TENOFOVIR ALAFENAMIDE FUMARATE

REACTIONS (1)
  - Drug resistance [Unknown]
